FAERS Safety Report 23356512 (Version 1)
Quarter: 2024Q1

REPORT INFORMATION
  Report Type: Spontaneous
  Country: MT (occurrence: MT)
  Receive Date: 20240102
  Receipt Date: 20240102
  Transmission Date: 20240410
  Serious: Yes (Other)
  Sender: FDA-Public Use
  Company Number: MT-BRISTOL-MYERS SQUIBB COMPANY-2024-000162

PATIENT
  Age: 48 Year
  Sex: Female

DRUGS (2)
  1. NIVOLUMAB [Suspect]
     Active Substance: NIVOLUMAB
     Indication: Renal cell carcinoma
  2. FLUPENTIXOL\MELITRACEN [Concomitant]
     Active Substance: FLUPENTIXOL\MELITRACEN
     Indication: Product used for unknown indication

REACTIONS (1)
  - Lichen planus [Unknown]
